FAERS Safety Report 12663939 (Version 1)
Quarter: 2016Q3

REPORT INFORMATION
  Report Type: Spontaneous
  Country: CN (occurrence: CN)
  Receive Date: 20160818
  Receipt Date: 20160818
  Transmission Date: 20161109
  Serious: Yes (Other)
  Sender: FDA-Public Use
  Company Number: CN-PFIZER INC-2016385136

PATIENT
  Age: 66 Year
  Sex: Female
  Weight: 52 kg

DRUGS (1)
  1. SOLU-MEDROL [Suspect]
     Active Substance: METHYLPREDNISOLONE SODIUM SUCCINATE
     Indication: INFECTION
     Dosage: 40 MG, 2X/DAY
     Route: 041
     Dates: start: 20160527, end: 20160527

REACTIONS (5)
  - Chest discomfort [Recovering/Resolving]
  - Nausea [Recovering/Resolving]
  - Asthma [Unknown]
  - Disease recurrence [Unknown]
  - Dyspnoea [Recovering/Resolving]

NARRATIVE: CASE EVENT DATE: 20160527
